FAERS Safety Report 16395965 (Version 1)
Quarter: 2019Q2

REPORT INFORMATION
  Report Type: Spontaneous
  Country: US (occurrence: US)
  Receive Date: 20190605
  Receipt Date: 20190605
  Transmission Date: 20190711
  Serious: No
  Sender: FDA-Public Use
  Company Number: US-ELI_LILLY_AND_COMPANY-US201905015540

PATIENT
  Sex: Female

DRUGS (1)
  1. CYRAMZA [Suspect]
     Active Substance: RAMUCIRUMAB
     Indication: LUNG NEOPLASM MALIGNANT
     Dosage: 1100 MG, EVERY 3 WEEKS
     Route: 042
     Dates: start: 20190415

REACTIONS (2)
  - Peripheral swelling [Not Recovered/Not Resolved]
  - Nail discolouration [Not Recovered/Not Resolved]
